FAERS Safety Report 12120285 (Version 1)
Quarter: 2016Q1

REPORT INFORMATION
  Report Type: Spontaneous
  Country: US (occurrence: US)
  Receive Date: 20160226
  Receipt Date: 20160226
  Transmission Date: 20160526
  Serious: No
  Sender: FDA-Public Use
  Company Number: US-SHIRE-US201601882

PATIENT
  Age: 17 Year
  Sex: Female
  Weight: 77.98 kg

DRUGS (6)
  1. ARMOUR THYROID [Concomitant]
     Active Substance: THYROID, PORCINE
     Indication: HYPOTHYROIDISM
     Dosage: 90 MG, 1X/DAY:QD
     Route: 048
     Dates: start: 2015
  2. VYVANSE [Suspect]
     Active Substance: LISDEXAMFETAMINE DIMESYLATE
     Indication: ASTHENIA
     Dosage: 1/2 OF 70 MG CAPSULE CONTENTS, 1X/DAY:QD
     Route: 048
     Dates: start: 20160204, end: 20160212
  3. VYVANSE [Suspect]
     Active Substance: LISDEXAMFETAMINE DIMESYLATE
     Indication: WEIGHT CONTROL
  4. PEXEVA [Concomitant]
     Active Substance: PAROXETINE MESYLATE
     Indication: ANXIETY
     Dosage: 30 MG, 1X/DAY:QD
     Route: 048
     Dates: start: 2015
  5. INVEGA [Concomitant]
     Active Substance: PALIPERIDONE
     Indication: HALLUCINATION, AUDITORY
     Dosage: 1.5 MG, 1X/DAY:QD
     Route: 048
     Dates: start: 201601
  6. PEXEVA [Concomitant]
     Active Substance: PAROXETINE MESYLATE
     Indication: DEPRESSION

REACTIONS (5)
  - Wrong technique in product usage process [Recovered/Resolved]
  - Hallucination, auditory [Not Recovered/Not Resolved]
  - Irritability [Not Recovered/Not Resolved]
  - Condition aggravated [Not Recovered/Not Resolved]
  - Product use issue [Recovered/Resolved]

NARRATIVE: CASE EVENT DATE: 20160204
